FAERS Safety Report 4927762-9 (Version None)
Quarter: 2006Q1

REPORT INFORMATION
  Report Type: 
  Country: None (occurrence: None)
  Receive Date: 20060228
  Receipt Date: 20050524
  Transmission Date: 20060701
  Serious: No
  Sender: FDA-Public Use
  Company Number: US-GLAXOSMITHKLINE-A0560332A

PATIENT
  Age: 56 Year
  Sex: Male

DRUGS (2)
  1. ABACAVIR [Suspect]
     Indication: ACQUIRED IMMUNODEFICIENCY SYNDROME
     Route: 048
  2. SAQUINAVIR [Concomitant]

REACTIONS (1)
  - ERECTILE DYSFUNCTION [None]
